FAERS Safety Report 21390274 (Version 1)
Quarter: 2022Q3

REPORT INFORMATION
  Report Type: Spontaneous
  Country: US (occurrence: US)
  Receive Date: 20220929
  Receipt Date: 20220929
  Transmission Date: 20221026
  Serious: No
  Sender: FDA-Public Use
  Company Number: US-MIMS-CORIMC-1317

PATIENT
  Age: 11 Year
  Sex: Male

DRUGS (2)
  1. AZSTARYS [Suspect]
     Active Substance: DEXMETHYLPHENIDATE HYDROCHLORIDE\SERDEXMETHYLPHENIDATE CHLORIDE
     Indication: Attention deficit hyperactivity disorder
     Dosage: 26.1MG/5.2MG QD
     Route: 048
  2. AZSTARYS [Suspect]
     Active Substance: DEXMETHYLPHENIDATE HYDROCHLORIDE\SERDEXMETHYLPHENIDATE CHLORIDE
     Dosage: 39.2MG/7.8MG
     Route: 048

REACTIONS (6)
  - Thinking abnormal [Recovered/Resolved]
  - Depressed mood [Recovered/Resolved]
  - Dysarthria [Recovered/Resolved]
  - Psychomotor hyperactivity [Recovered/Resolved]
  - Palpitations [Recovered/Resolved]
  - Therapeutic product effect incomplete [Unknown]

NARRATIVE: CASE EVENT DATE: 20220801
